FAERS Safety Report 9054521 (Version 1)
Quarter: 2013Q1

REPORT INFORMATION
  Report Type: Spontaneous
  Country: BR (occurrence: BR)
  Receive Date: 20130208
  Receipt Date: 20130208
  Transmission Date: 20140127
  Serious: Yes (Hospitalization)
  Sender: FDA-Public Use
  Company Number: BR-B.I. PHARMACEUTICALS,INC./RIDGEFIELD-2013-BR-00095BR

PATIENT
  Age: 60 None
  Sex: Male
  Weight: 75 kg

DRUGS (2)
  1. SPIRIVA RESPIMAT [Suspect]
     Indication: BRONCHITIS
     Dosage: 5 MCG
     Route: 055
     Dates: start: 201211
  2. PREDNISONE [Concomitant]
     Indication: BRONCHITIS

REACTIONS (1)
  - Pneumonia [Recovered/Resolved]
